FAERS Safety Report 4359667-9 (Version None)
Quarter: 2004Q2

REPORT INFORMATION
  Report Type: 
  Country: None (occurrence: None)
  Receive Date: 20040512
  Receipt Date: 20040504
  Transmission Date: 20050107
  Serious: Yes (Death)
  Sender: FDA-Public Use
  Company Number: US-JNJFOC-20040401132

PATIENT
  Age: 74 Year
  Sex: Female
  Weight: 45.3597 kg

DRUGS (2)
  1. DURAGESIC [Suspect]
     Indication: PAIN
     Dosage: TRANSDERMAL
     Route: 062
  2. DECADRON [Concomitant]

REACTIONS (5)
  - COMA [None]
  - GLIOBLASTOMA MULTIFORME [None]
  - MALIGNANT NEOPLASM PROGRESSION [None]
  - PAIN [None]
  - SEDATION [None]
